FAERS Safety Report 5769138-0 (Version None)
Quarter: 2008Q2

REPORT INFORMATION
  Report Type: 
  Country: None (occurrence: None)
  Receive Date: 20080612
  Receipt Date: 20080325
  Transmission Date: 20081010
  Serious: Yes (Other)
  Sender: FDA-Public Use
  Company Number: US-ABBOTT-08P-163-0443708-00

PATIENT
  Sex: Female

DRUGS (3)
  1. HUMIRA [Suspect]
     Indication: CROHN'S DISEASE
     Route: 058
     Dates: start: 20071201, end: 20080201
  2. INFLIXIMAB [Concomitant]
     Indication: CROHN'S DISEASE
     Route: 042
     Dates: start: 20071001
  3. ENTACORT EC [Concomitant]
     Indication: CROHN'S DISEASE

REACTIONS (1)
  - DEMYELINATION [None]
